FAERS Safety Report 6710598-6 (Version None)
Quarter: 2010Q2

REPORT INFORMATION
  Report Type: 
  Country: None (occurrence: None)
  Receive Date: 20100430
  Receipt Date: 20100420
  Transmission Date: 20101027
  Serious: Yes (Death, Other)
  Sender: FDA-Public Use
  Company Number: MC200900099

PATIENT

DRUGS (5)
  1. ANGIOMAX [Suspect]
     Indication: PERCUTANEOUS CORONARY INTERVENTION
     Dosage: SEE IMAGE
     Route: 040
  2. . [Concomitant]
  3. CLOPIDOGREL [Concomitant]
  4. ASPIRIN [Concomitant]
  5. ABCIXIMAB (ABCIXIMAB) [Concomitant]

REACTIONS (7)
  - CARDIAC ARREST [None]
  - GASTROINTESTINAL HAEMORRHAGE [None]
  - HAEMORRHAGE [None]
  - MYOCARDIAL INFARCTION [None]
  - PERICARDIAL HAEMORRHAGE [None]
  - THROMBOSIS IN DEVICE [None]
  - VASCULAR ACCESS COMPLICATION [None]
